FAERS Safety Report 16551122 (Version 1)
Quarter: 2019Q3

REPORT INFORMATION
  Report Type: Spontaneous
  Country: US (occurrence: US)
  Receive Date: 20190709
  Receipt Date: 20190709
  Transmission Date: 20191004
  Serious: Yes (Other)
  Sender: FDA-Public Use
  Company Number: None

PATIENT
  Age: 64 Year
  Sex: Female
  Weight: 72.9 kg

DRUGS (6)
  1. METOPROLOL. [Concomitant]
     Active Substance: METOPROLOL
  2. MURON [Concomitant]
  3. LOZARTAN [Concomitant]
  4. PREPNISOLONE EYE DROPS [Concomitant]
  5. REFRESH P.M. [Suspect]
     Active Substance: MINERAL OIL\PETROLATUM
     Indication: DRY EYE
     Dates: start: 20170101, end: 20190608
  6. TIMOLOL. [Concomitant]
     Active Substance: TIMOLOL

REACTIONS (3)
  - Visual impairment [None]
  - Eye pain [None]
  - Macular oedema [None]

NARRATIVE: CASE EVENT DATE: 20170101
